FAERS Safety Report 8373146-3 (Version None)
Quarter: 2012Q2

REPORT INFORMATION
  Report Type: 
  Country: None (occurrence: None)
  Receive Date: 20120521
  Receipt Date: 20120515
  Transmission Date: 20120825
  Serious: Yes (Hospitalization)
  Sender: FDA-Public Use
  Company Number: US-BAYER-2011-011050

PATIENT
  Age: 22 Year
  Sex: Female
  Weight: 91 kg

DRUGS (1)
  1. YAZ [Suspect]
     Dosage: UNK
     Dates: start: 20090513, end: 20090701

REACTIONS (7)
  - CHOLECYSTITIS [None]
  - PAIN [None]
  - ABDOMINAL PAIN [None]
  - ABDOMINAL ABSCESS [None]
  - FEAR [None]
  - BILE DUCT STONE [None]
  - CHOLELITHIASIS [None]
